FAERS Safety Report 10881337 (Version 2)
Quarter: 2015Q2

REPORT INFORMATION
  Report Type: Spontaneous
  Country: JP (occurrence: JP)
  Receive Date: 20150303
  Receipt Date: 20150504
  Transmission Date: 20150821
  Serious: Yes (Hospitalization)
  Sender: FDA-Public Use
  Company Number: PHJP2015JP002107

PATIENT
  Age: 46 Year
  Sex: Male

DRUGS (2)
  1. TEGRETOL [Suspect]
     Active Substance: CARBAMAZEPINE
     Indication: FACIAL SPASM
     Dosage: 100 MG, BID
     Route: 048
     Dates: start: 20140314, end: 20140430
  2. DIOVAN [Suspect]
     Active Substance: VALSARTAN
     Indication: HYPERTENSION
     Dosage: 80 MG, QD
     Route: 048
     Dates: start: 20140314, end: 20140430

REACTIONS (5)
  - Drug eruption [Recovering/Resolving]
  - Pyrexia [Unknown]
  - Erythema [Unknown]
  - Rash [Unknown]
  - Pruritus [Unknown]

NARRATIVE: CASE EVENT DATE: 20140423
